FAERS Safety Report 8502696-1 (Version None)
Quarter: 2012Q3

REPORT INFORMATION
  Report Type: 
  Country: None (occurrence: None)
  Receive Date: 20120702
  Receipt Date: 20120423
  Transmission Date: 20120928
  Serious: Yes (Hospitalization)
  Sender: FDA-Public Use
  Company Number: B0790621A

PATIENT
  Sex: Male
  Weight: 58.9676 kg

DRUGS (3)
  1. BLINDED TRIAL MEDICATION (NO PREF. NAME) [Suspect]
     Indication: CARDIAC FAILURE
     Dosage: PO
     Route: 048
     Dates: start: 20100106
  2. SPIRONOLACTONE [Concomitant]
  3. DIGOXIN [Suspect]
     Indication: CARDIAC FAILURE CONGESTIVE
     Dosage: .25 MG;PO
     Route: 048
     Dates: start: 20110811

REACTIONS (9)
  - BLOOD UREA INCREASED [None]
  - FLUID OVERLOAD [None]
  - GLOMERULAR FILTRATION RATE DECREASED [None]
  - HYPOTENSION [None]
  - BLOOD CREATININE INCREASED [None]
  - BLOOD POTASSIUM DECREASED [None]
  - TOXICITY TO VARIOUS AGENTS [None]
  - CARDIAC FAILURE CONGESTIVE [None]
  - CONDITION AGGRAVATED [None]
